FAERS Safety Report 14763217 (Version 1)
Quarter: 2018Q2

REPORT INFORMATION
  Report Type: Spontaneous
  Country: US (occurrence: US)
  Receive Date: 20180409
  Receipt Date: 20180409
  Transmission Date: 20180711
  Serious: No
  Sender: FDA-Public Use
  Company Number: None

PATIENT
  Age: 60 Year
  Sex: Female

DRUGS (1)
  1. ENBREL [Suspect]
     Active Substance: ETANERCEPT

REACTIONS (6)
  - Pain [None]
  - Inability to afford medication [None]
  - Hypoaesthesia [None]
  - Paraesthesia [None]
  - Drug dose omission [None]
  - Joint range of motion decreased [None]

NARRATIVE: CASE EVENT DATE: 20180324
